FAERS Safety Report 20579942 (Version 2)
Quarter: 2022Q1

REPORT INFORMATION
  Report Type: Spontaneous
  Country: JP (occurrence: JP)
  Receive Date: 20220310
  Receipt Date: 20220325
  Transmission Date: 20220423
  Serious: No
  Sender: FDA-Public Use
  Company Number: JP-MSD-2203JPN000572J

PATIENT
  Age: 47 Year
  Sex: Female

DRUGS (3)
  1. MOLNUPIRAVIR [Suspect]
     Active Substance: MOLNUPIRAVIR
     Indication: COVID-19 treatment
     Dosage: 800 MILLIGRAM, BID
     Route: 048
     Dates: start: 20220224, end: 20220228
  2. HERBALS [Concomitant]
     Active Substance: HERBALS
     Indication: Antitussive therapy
     Dosage: 9 GRAM, TID
     Route: 048
     Dates: start: 20220224, end: 20220302
  3. TRANEXAMIC ACID [Concomitant]
     Active Substance: TRANEXAMIC ACID
     Indication: Pharyngitis
     Dosage: 3 DOSAGE FORM, TID
     Route: 048
     Dates: start: 20220224, end: 20220228

REACTIONS (1)
  - Diarrhoea [Recovered/Resolved]

NARRATIVE: CASE EVENT DATE: 20220225
